FAERS Safety Report 24883562 (Version 2)
Quarter: 2025Q1

REPORT INFORMATION
  Report Type: Spontaneous
  Country: JP (occurrence: JP)
  Receive Date: 20250124
  Receipt Date: 20250203
  Transmission Date: 20250408
  Serious: Yes (Hospitalization)
  Sender: ELI LILLY AND COMPANY
  Company Number: JP-ELI_LILLY_AND_COMPANY-JP202501010491

PATIENT
  Age: 85 Year
  Sex: Female

DRUGS (3)
  1. CYRAMZA [Suspect]
     Active Substance: RAMUCIRUMAB
     Indication: Non-small cell lung cancer
     Route: 041
     Dates: start: 20240904, end: 20250114
  2. TARCEVA [Suspect]
     Active Substance: ERLOTINIB HYDROCHLORIDE
     Indication: Non-small cell lung cancer
     Route: 065
     Dates: start: 20240904, end: 20250114
  3. DIPHENHYDRAMINE HYDROCHLORIDE [Concomitant]
     Active Substance: DIPHENHYDRAMINE HYDROCHLORIDE

REACTIONS (9)
  - Henoch-Schonlein purpura [Recovering/Resolving]
  - Vasculitis [Recovering/Resolving]
  - Erythema [Recovering/Resolving]
  - Purpura [Recovering/Resolving]
  - Rash [Recovering/Resolving]
  - Dermal cyst [Recovering/Resolving]
  - Dermatitis acneiform [Recovering/Resolving]
  - Dry skin [Recovering/Resolving]
  - Paronychia [Recovering/Resolving]

NARRATIVE: CASE EVENT DATE: 20240909
